FAERS Safety Report 21199557 (Version 1)
Quarter: 2022Q3

REPORT INFORMATION
  Report Type: Spontaneous
  Country: NO (occurrence: NO)
  Receive Date: 20220811
  Receipt Date: 20220811
  Transmission Date: 20221027
  Serious: Yes (Other)
  Sender: FDA-Public Use
  Company Number: NO-NOVARTISPH-NVSC2022NO180282

PATIENT
  Age: 56 Year
  Sex: Female

DRUGS (1)
  1. ESTRADIOL HEMIHYDRATE\NORETHINDRONE ACETATE [Suspect]
     Active Substance: ESTRADIOL HEMIHYDRATE\NORETHINDRONE ACETATE
     Indication: Product used for unknown indication
     Dosage: 50 UG/24 HOURS (0.78 MG/5CM2)
     Route: 065
     Dates: start: 202102

REACTIONS (2)
  - Haemorrhage [Unknown]
  - Product packaging issue [Unknown]
